FAERS Safety Report 13687392 (Version 1)
Quarter: 2017Q2

REPORT INFORMATION
  Report Type: Report from Study
  Country: None (occurrence: BR)
  Receive Date: 20170624
  Receipt Date: 20170624
  Transmission Date: 20170830
  Serious: Yes (Other)
  Sender: FDA-Public Use
  Company Number: BR-ABBVIE-12P-020-0969954-00

PATIENT
  Age: 31 Year
  Sex: Female
  Weight: 46 kg

DRUGS (9)
  1. FOLIC ACID. [Concomitant]
     Active Substance: FOLIC ACID
     Indication: PRODUCT USED FOR UNKNOWN INDICATION
     Route: 048
     Dates: start: 201704
  2. HUMIRA [Suspect]
     Active Substance: ADALIMUMAB
     Route: 058
  3. BETAMETHASONE / DEXCHLORPHENIRAMINE MALEATE  (CELESTAMINE) [Concomitant]
     Indication: INJECTION RELATED REACTION
     Dosage: 2 TABLET IN THE DAYS OF HUMIRA INJECTION
     Route: 048
     Dates: start: 201203
  4. AZATHIOPRINE. [Concomitant]
     Active Substance: AZATHIOPRINE
     Indication: CROHN^S DISEASE
     Route: 048
     Dates: start: 201009
  5. HUMIRA [Suspect]
     Active Substance: ADALIMUMAB
     Indication: CROHN^S DISEASE
     Route: 058
     Dates: start: 20100109, end: 20100109
  6. PURAN [Concomitant]
     Active Substance: LEVOTHYROXINE SODIUM
     Indication: HYPOTHYROIDISM
     Route: 048
  7. HUMIRA [Suspect]
     Active Substance: ADALIMUMAB
     Route: 058
  8. PURAN [Concomitant]
     Active Substance: LEVOTHYROXINE SODIUM
     Route: 048
  9. PREDNISONE. [Concomitant]
     Active Substance: PREDNISONE
     Indication: CROHN^S DISEASE
     Route: 048
     Dates: start: 201704

REACTIONS (9)
  - Pain in extremity [Recovered/Resolved]
  - Injection site erythema [Recovered/Resolved]
  - Swelling [Not Recovered/Not Resolved]
  - Injection site warmth [Recovered/Resolved]
  - Abortion spontaneous [Unknown]
  - Intestinal perforation [Recovered/Resolved]
  - Injection site induration [Recovered/Resolved]
  - Pruritus [Not Recovered/Not Resolved]
  - Injection site swelling [Recovered/Resolved]

NARRATIVE: CASE EVENT DATE: 201012
